FAERS Safety Report 5778835-2 (Version None)
Quarter: 2008Q2

REPORT INFORMATION
  Report Type: 
  Country: None (occurrence: None)
  Receive Date: 20080619
  Receipt Date: 20080610
  Transmission Date: 20081010
  Serious: Yes (Other)
  Sender: FDA-Public Use
  Company Number: JP-ROCHE-570312

PATIENT
  Age: 60 Year
  Sex: Female

DRUGS (1)
  1. ANEXATE [Suspect]
     Indication: DRUG USE FOR UNKNOWN INDICATION
     Route: 042
     Dates: start: 20080610, end: 20080610

REACTIONS (1)
  - SHOCK [None]
